FAERS Safety Report 21117968 (Version 6)
Quarter: 2022Q4

REPORT INFORMATION
  Report Type: Report from Study
  Country: CA (occurrence: CA)
  Receive Date: 20220722
  Receipt Date: 20221115
  Transmission Date: 20230113
  Serious: Yes (Other)
  Sender: FDA-Public Use
  Company Number: CA-BRISTOL-MYERS SQUIBB COMPANY-2022-074538

PATIENT
  Age: 61 Year
  Sex: Female
  Weight: 72 kg

DRUGS (2)
  1. OPDIVO [Suspect]
     Active Substance: NIVOLUMAB
     Indication: Oesophageal adenocarcinoma
     Dosage: Q4WKS (EVERY 4 WEEKS)?EXPIRY DATE: 30-NOV-2023, 1913766
     Route: 042
     Dates: start: 20220616
  2. OPDIVO [Suspect]
     Active Substance: NIVOLUMAB
     Dosage: Q4WEEKS
     Route: 041
     Dates: start: 20220616

REACTIONS (20)
  - Oesophageal dilatation [Unknown]
  - Dyspepsia [Recovered/Resolved]
  - Restless legs syndrome [Unknown]
  - Hypoaesthesia [Unknown]
  - Paraesthesia [Unknown]
  - Dry mouth [Unknown]
  - Fatigue [Not Recovered/Not Resolved]
  - Depressed mood [Unknown]
  - Somnolence [Unknown]
  - Decreased appetite [Unknown]
  - Feeling abnormal [Unknown]
  - Dyspnoea [Unknown]
  - Anxiety [Unknown]
  - Psychiatric symptom [Unknown]
  - Blood pressure increased [Unknown]
  - Fatigue [Unknown]
  - Eructation [Recovering/Resolving]
  - Miliaria [Recovered/Resolved]
  - Oesophagitis [Unknown]
  - Sleep disorder [Unknown]

NARRATIVE: CASE EVENT DATE: 20220101
